FAERS Safety Report 15617965 (Version 2)
Quarter: 2018Q4

REPORT INFORMATION
  Report Type: Report from Study
  Country: US (occurrence: US)
  Receive Date: 20181114
  Receipt Date: 20181210
  Transmission Date: 20190205
  Serious: Yes (Death, Hospitalization, Other)
  Sender: FDA-Public Use
  Company Number: US-GILEAD-2018-0374113

PATIENT
  Age: 65 Year
  Sex: Female
  Weight: 130 kg

DRUGS (24)
  1. PROAIR RESPICLICK [Concomitant]
     Active Substance: ALBUTEROL SULFATE
     Dosage: 108MCG/ACT Q4HR
  2. VERELAN [Concomitant]
     Active Substance: VERAPAMIL HYDROCHLORIDE
     Dosage: 120 MG, QD
     Route: 048
  3. TOPROL XL [Concomitant]
     Active Substance: METOPROLOL SUCCINATE
     Dosage: 50 MG, TID
     Route: 048
  4. PRILOSEC [Concomitant]
     Active Substance: OMEPRAZOLE MAGNESIUM
  5. REVATIO [Concomitant]
     Active Substance: SILDENAFIL CITRATE
     Dosage: 20 MG, TID
     Route: 048
  6. IMURAN [Concomitant]
     Active Substance: AZATHIOPRINE
     Dosage: 50 MG, BID
     Route: 048
  7. SYNTHROID [Concomitant]
     Active Substance: LEVOTHYROXINE SODIUM
     Dosage: 50 MCG, QD
     Route: 048
  8. AMBRISENTAN [Suspect]
     Active Substance: AMBRISENTAN
     Indication: SCLERODERMA
  9. PAXIL [Concomitant]
     Active Substance: PAROXETINE HYDROCHLORIDE
     Dosage: 10 MG
     Route: 048
  10. COLACE [Concomitant]
     Active Substance: DOCUSATE SODIUM
     Dosage: 100 MG, TID
     Route: 048
  11. FUROSEMIDE. [Concomitant]
     Active Substance: FUROSEMIDE
  12. BREO ELLIPTA [Concomitant]
     Active Substance: FLUTICASONE FUROATE\VILANTEROL TRIFENATATE
     Dosage: 100MCG/25MCG
  13. KLOR-CON [Concomitant]
     Active Substance: POTASSIUM CHLORIDE
     Dosage: 10 MEQ, QD
     Route: 048
  14. ASPIRIN BAYER [Concomitant]
     Active Substance: ASPIRIN
     Route: 048
  15. NORCO [Concomitant]
     Active Substance: ACETAMINOPHEN\HYDROCODONE BITARTRATE
     Dosage: 10 MG, Q6H
     Route: 048
  16. PREDNISONE. [Concomitant]
     Active Substance: PREDNISONE
     Dosage: 5 MG, QD
     Route: 048
  17. VENTOLIN HFA [Concomitant]
     Active Substance: ALBUTEROL SULFATE
     Dosage: 108MCG, QH4R
  18. SPIRIVA [Concomitant]
     Active Substance: TIOTROPIUM BROMIDE MONOHYDRATE
     Dosage: 18MCG
  19. DIOVAN [Concomitant]
     Active Substance: VALSARTAN
     Dosage: 320 MG, QD
     Route: 048
  20. RECLAST [Concomitant]
     Active Substance: ZOLEDRONIC ACID
     Dosage: 5MG/100ML IV SOLN
  21. VITAMIN D3 [Concomitant]
     Active Substance: CHOLECALCIFEROL
  22. PHENERGAN DM [Concomitant]
     Active Substance: DEXTROMETHORPHAN HYDROBROMIDE\PROMETHAZINE HYDROCHLORIDE
     Dosage: 1.25ML, Q6H
  23. AMBRISENTAN [Suspect]
     Active Substance: AMBRISENTAN
     Indication: PULMONARY HYPERTENSION
     Dosage: 5 MG, QD
     Route: 048
  24. OXYGEN. [Concomitant]
     Active Substance: OXYGEN
     Dosage: 3L, MIN

REACTIONS (5)
  - Pneumonia [Unknown]
  - Chest pain [Unknown]
  - Hypotension [Recovered/Resolved]
  - Cardiac failure congestive [Unknown]
  - Death [Fatal]

NARRATIVE: CASE EVENT DATE: 20181107
